FAERS Safety Report 21594767 (Version 2)
Quarter: 2022Q4

REPORT INFORMATION
  Report Type: Spontaneous
  Country: US (occurrence: US)
  Receive Date: 20221115
  Receipt Date: 20221118
  Transmission Date: 20230112
  Serious: Yes (Other)
  Sender: FDA-Public Use
  Company Number: US-BRISTOL-MYERS SQUIBB COMPANY-2022-135745

PATIENT
  Age: 81 Year
  Sex: Female
  Weight: 48.08 kg

DRUGS (1)
  1. ORENCIA [Suspect]
     Active Substance: ABATACEPT
     Indication: Rheumatoid arthritis
     Dosage: DOSE : UNAVAILABLE;     FREQ : WEEKLY,  125 MG CLICKJECT
     Route: 058
     Dates: start: 2022

REACTIONS (2)
  - Deafness [Unknown]
  - Device malfunction [Unknown]

NARRATIVE: CASE EVENT DATE: 20221107
